FAERS Safety Report 4567679-5 (Version None)
Quarter: 2005Q1

REPORT INFORMATION
  Report Type: 
  Country: None (occurrence: None)
  Receive Date: 20050202
  Receipt Date: 20050120
  Transmission Date: 20050727
  Serious: Yes (Hospitalization)
  Sender: FDA-Public Use
  Company Number: US-JNJFOC-20050105729

PATIENT
  Sex: Male
  Weight: 73.48 kg

DRUGS (7)
  1. INFLIXIMAB [Suspect]
     Indication: RHEUMATOID ARTHRITIS
     Route: 042
  2. COUMADIN [Concomitant]
  3. FOLIC ACID [Concomitant]
  4. METHOTREXATE [Concomitant]
  5. PLAVIX [Concomitant]
  6. PREDNISONE [Concomitant]
  7. LIPITOR [Concomitant]

REACTIONS (1)
  - CORONARY ARTERY DISEASE [None]
